FAERS Safety Report 23193942 (Version 1)
Quarter: 2023Q4

REPORT INFORMATION
  Report Type: Spontaneous
  Country: IR (occurrence: IR)
  Receive Date: 20231117
  Receipt Date: 20231117
  Transmission Date: 20240109
  Serious: Yes (Other)
  Sender: FDA-Public Use
  Company Number: IR-STRIDES ARCOLAB LIMITED-2023SP017031

PATIENT
  Sex: Female

DRUGS (19)
  1. ZOLPIDEM [Suspect]
     Active Substance: ZOLPIDEM TARTRATE
     Indication: Anxiety
     Dosage: 5 MILLIGRAM, AT BED TIME (TABLET)
     Route: 065
  2. ZOLPIDEM [Suspect]
     Active Substance: ZOLPIDEM TARTRATE
     Indication: Tremor
     Dosage: 10 MILLIGRAM (INCREASED THE DOSE: TABLET)
     Route: 065
  3. ZOLPIDEM [Suspect]
     Active Substance: ZOLPIDEM TARTRATE
     Indication: Tremor
     Dosage: UNK, (INCREASED HER OWN CONSUMPTION )
     Route: 065
  4. ZOLPIDEM [Suspect]
     Active Substance: ZOLPIDEM TARTRATE
     Indication: Nystagmus
     Dosage: 300 TABLETS, QD (300 TABLETS OF 10MG ZOLPIDEM AT ONCE EVERY DAY) (TOTAL 3000 MG)
     Route: 065
     Dates: start: 2016
  5. ZOLPIDEM [Suspect]
     Active Substance: ZOLPIDEM TARTRATE
     Indication: Syncope
     Dosage: 1500 MILLIGRAM PER DAY (TABLET)
     Route: 065
     Dates: start: 2016
  6. ZOLPIDEM [Suspect]
     Active Substance: ZOLPIDEM TARTRATE
     Dosage: 5000 MILLIGRAM PER DAY (TABLET)
     Route: 065
  7. ZOLPIDEM [Suspect]
     Active Substance: ZOLPIDEM TARTRATE
     Dosage: 6000 MILLIGRAM PER DAY (600 TABLET/DAY)
     Route: 065
     Dates: start: 2019
  8. ZOLPIDEM [Suspect]
     Active Substance: ZOLPIDEM TARTRATE
     Dosage: 6000 MILLIGRAM PER DAY (TABLET)
     Route: 065
  9. ZOLPIDEM [Suspect]
     Active Substance: ZOLPIDEM TARTRATE
     Dosage: 4000 MILLIGRAM PER DAY (TABLET)
     Route: 065
  10. ALPRAZOLAM [Suspect]
     Active Substance: ALPRAZOLAM
     Indication: Anxiety
     Dosage: UNK
     Route: 065
  11. ALPRAZOLAM [Suspect]
     Active Substance: ALPRAZOLAM
     Indication: Tremor
  12. ALPRAZOLAM [Suspect]
     Active Substance: ALPRAZOLAM
     Indication: Tremor
  13. ALPRAZOLAM [Suspect]
     Active Substance: ALPRAZOLAM
     Indication: Nystagmus
  14. ALPRAZOLAM [Suspect]
     Active Substance: ALPRAZOLAM
     Indication: Syncope
  15. VALPROATE SODIUM [Suspect]
     Active Substance: VALPROATE SODIUM
     Indication: Anxiety
     Dosage: UNK
     Route: 065
  16. VALPROATE SODIUM [Suspect]
     Active Substance: VALPROATE SODIUM
     Indication: Tremor
     Dosage: UNK
     Route: 065
  17. VALPROATE SODIUM [Suspect]
     Active Substance: VALPROATE SODIUM
     Indication: Tremor
  18. VALPROATE SODIUM [Suspect]
     Active Substance: VALPROATE SODIUM
     Indication: Nystagmus
  19. VALPROATE SODIUM [Suspect]
     Active Substance: VALPROATE SODIUM
     Indication: Syncope

REACTIONS (25)
  - Ocular hyperaemia [Recovered/Resolved]
  - Balance disorder [Recovered/Resolved]
  - Irritability [Recovered/Resolved]
  - Hyperhidrosis [Recovered/Resolved]
  - Nystagmus [Recovered/Resolved]
  - Condition aggravated [Recovered/Resolved]
  - Feelings of worthlessness [Recovered/Resolved]
  - Decreased appetite [Recovered/Resolved]
  - Stress [Recovered/Resolved]
  - Psychiatric symptom [Recovered/Resolved]
  - Vision blurred [Recovered/Resolved]
  - Depression [Recovered/Resolved]
  - Tremor [Recovered/Resolved]
  - Anxiety [Recovered/Resolved]
  - Amnesia [Recovered/Resolved]
  - Seizure like phenomena [Recovered/Resolved]
  - Hot flush [Recovered/Resolved]
  - Seizure [Recovered/Resolved]
  - Headache [Recovered/Resolved]
  - Withdrawal syndrome [Recovered/Resolved]
  - Treatment noncompliance [Unknown]
  - Intentional product misuse [Unknown]
  - Drug abuse [Unknown]
  - Intentional overdose [Unknown]
  - Off label use [Unknown]

NARRATIVE: CASE EVENT DATE: 20110101
